FAERS Safety Report 5392585-6 (Version None)
Quarter: 2007Q3

REPORT INFORMATION
  Report Type: 
  Country: None (occurrence: None)
  Receive Date: 20070720
  Receipt Date: 20070712
  Transmission Date: 20080115
  Serious: Yes (Hospitalization)
  Sender: FDA-Public Use
  Company Number: US-ABBOTT-07P-163-0371783-00

PATIENT
  Sex: Male
  Weight: 103 kg

DRUGS (12)
  1. HUMIRA [Suspect]
     Indication: CROHN'S DISEASE
     Route: 058
     Dates: start: 20050224
  2. HUMIRA [Suspect]
     Route: 058
     Dates: start: 20070101, end: 20070607
  3. AZATHIOPRINE [Concomitant]
     Indication: CROHN'S DISEASE
     Dates: start: 20031001
  4. AZATHIOPRINE [Concomitant]
     Dates: start: 20060425
  5. MESALAZINE [Concomitant]
     Indication: CROHN'S DISEASE
     Dates: start: 20040601
  6. IMODIUM [Concomitant]
     Indication: DIARRHOEA
     Dosage: 2 MG - 4 MG
     Dates: start: 20040701
  7. ACETAMINOPHEN [Concomitant]
     Indication: HEADACHE
     Dosage: 500 - 1000 MG
     Dates: start: 19900601
  8. CELLUVISC [Concomitant]
     Indication: DRY EYE
     Dosage: 2 DROPS EACH EYE
     Dates: start: 20051221, end: 20051221
  9. SYSTANE PF [Concomitant]
     Indication: DRY EYE
     Dosage: 1 DROP EACH EYE
     Dates: start: 20060101
  10. AUGMENTIN '125' [Concomitant]
     Indication: CELLULITIS
     Dosage: 500 MG/125 MG
     Dates: start: 20060302, end: 20060311
  11. AUGMENTIN '125' [Concomitant]
     Dosage: 500MG/125MG
     Dates: start: 20061214, end: 20061223
  12. CLARITHROMYCIN [Concomitant]
     Indication: PROPHYLAXIS
     Dates: start: 20060413, end: 20060415

REACTIONS (1)
  - CROHN'S DISEASE [None]
